FAERS Safety Report 17653049 (Version 9)
Quarter: 2021Q4

REPORT INFORMATION
  Report Type: Report from Study
  Country: DE (occurrence: DE)
  Receive Date: 20200409
  Receipt Date: 20211223
  Transmission Date: 20220303
  Serious: Yes (Hospitalization, Other)
  Sender: FDA-Public Use
  Company Number: NVSC2020DE095876

PATIENT
  Sex: Female

DRUGS (15)
  1. KISQALI [Suspect]
     Active Substance: RIBOCICLIB
     Indication: Breast cancer metastatic
     Dosage: 600 MG (21 DAYS INTAKE, 7 DAYS PAUSE)
     Route: 048
     Dates: start: 20180119, end: 20181231
  2. KISQALI [Suspect]
     Active Substance: RIBOCICLIB
     Dosage: 600 MG, (21 DAYS INTAKE, 7 DAYS PAUSE)
     Route: 048
     Dates: start: 20190122, end: 20200525
  3. LETROZOLE [Suspect]
     Active Substance: LETROZOLE
     Indication: Breast cancer metastatic
     Dosage: 2.5 MG, QD (MORNING)
     Route: 048
     Dates: start: 20180119, end: 20211025
  4. CHOLECALCIFEROL [Concomitant]
     Active Substance: CHOLECALCIFEROL
     Indication: Product used for unknown indication
     Dosage: 20000 IU, QW
     Route: 065
  5. FOLIC ACID [Concomitant]
     Active Substance: FOLIC ACID
     Indication: Product used for unknown indication
     Dosage: 5 MG, QD (1X DAILY (MORNING))
     Route: 065
  6. METOPROLOL [Concomitant]
     Active Substance: METOPROLOL
     Indication: Product used for unknown indication
     Dosage: 23.75 MG, QD (1X DAILY (EVENING))
     Route: 065
  7. METOPROLOL [Concomitant]
     Active Substance: METOPROLOL
     Dosage: 23.75 MG, BID (2-0-1) (1X DAILY (MORNING))
     Route: 065
  8. TORSEMIDE [Concomitant]
     Active Substance: TORSEMIDE
     Indication: Product used for unknown indication
     Dosage: 10 MG, BID (2X DAILY (MORNING AND NOON))
     Route: 065
  9. SPIRONOLACTONE [Concomitant]
     Active Substance: SPIRONOLACTONE
     Indication: Product used for unknown indication
     Dosage: 25 MG, QD (1X DAILY (MORNING))
     Route: 065
  10. PANTOPRAZOLE [Concomitant]
     Active Substance: PANTOPRAZOLE
     Indication: Product used for unknown indication
     Dosage: 40 MG, QD (1-0-0) (1X DAILY (MORNING))
     Route: 065
  11. ASPIRIN [Concomitant]
     Active Substance: ASPIRIN
     Indication: Product used for unknown indication
     Dosage: 100 MG, QD (DAILY (MORNING))
     Route: 065
  12. ATORVASTATIN [Concomitant]
     Active Substance: ATORVASTATIN
     Indication: Product used for unknown indication
     Dosage: 10 MG, QD (1X DAILY (EVENING))
     Route: 065
  13. ENOXAPARIN SODIUM [Concomitant]
     Active Substance: ENOXAPARIN SODIUM
     Indication: Product used for unknown indication
     Dosage: 40 MG, QD (1X DAILY (EVENING))
     Route: 065
  14. METAMIZOLE [Concomitant]
     Active Substance: METAMIZOLE
     Indication: Product used for unknown indication
     Dosage: 500 MG, BID (2X DAILY (MORNING AND EVENING))
     Route: 065
  15. METAMIZOLE [Concomitant]
     Active Substance: METAMIZOLE
     Dosage: 500 MG, QID (4X DAILY IF NEEDED)
     Route: 065

REACTIONS (26)
  - Peripheral arterial occlusive disease [Not Recovered/Not Resolved]
  - Necrosis [Unknown]
  - Iliac artery occlusion [Unknown]
  - Gangrene [Unknown]
  - Skin ulcer [Recovered/Resolved]
  - Oedema peripheral [Unknown]
  - Cellulitis [Recovered/Resolved]
  - Erysipelas [Recovered/Resolved]
  - Coronary artery disease [Recovered/Resolved with Sequelae]
  - Skin ulcer [Recovered/Resolved]
  - Osteomyelitis [Unknown]
  - Mitral valve incompetence [Not Recovered/Not Resolved]
  - Left ventricular dysfunction [Not Recovered/Not Resolved]
  - Pulmonary hypertension [Not Recovered/Not Resolved]
  - Type 2 diabetes mellitus [Not Recovered/Not Resolved]
  - Basal ganglia infarction [Unknown]
  - Peripheral artery stenosis [Not Recovered/Not Resolved]
  - Intermittent claudication [Recovered/Resolved with Sequelae]
  - Peripheral artery occlusion [Not Recovered/Not Resolved]
  - Cognitive disorder [Unknown]
  - Metastasis [Unknown]
  - General physical health deterioration [Recovering/Resolving]
  - Cerebral microangiopathy [Unknown]
  - Aneurysm [Unknown]
  - Superinfection [Unknown]
  - Aortic valve stenosis [Unknown]

NARRATIVE: CASE EVENT DATE: 20200127
